FAERS Safety Report 23644858 (Version 1)
Quarter: 2024Q1

REPORT INFORMATION
  Report Type: Spontaneous
  Country: US (occurrence: None)
  Receive Date: 20240317
  Receipt Date: 20240317
  Transmission Date: 20240409
  Serious: Yes (Other)
  Sender: FDA-Public Use
  Company Number: None

PATIENT
  Age: 61 Year
  Sex: Female
  Weight: 83.25 kg

DRUGS (7)
  1. DULOXETINE [Suspect]
     Active Substance: DULOXETINE
     Indication: Fibromyalgia
     Dosage: OTHER QUANTITY : 1 CAPSULE(S);?
     Route: 048
     Dates: start: 20210312, end: 20230715
  2. NORTRIPTYLINE [Concomitant]
  3. VALACYCLOVIR [Concomitant]
     Active Substance: VALACYCLOVIR HYDROCHLORIDE
  4. Mometasone Furate [Concomitant]
  5. VIT D [Concomitant]
  6. FISH OIL [Concomitant]
  7. MAGNESIUM [Concomitant]

REACTIONS (10)
  - Decreased activity [None]
  - Impaired work ability [None]
  - Weight increased [None]
  - Glucose tolerance impaired [None]
  - Withdrawal syndrome [None]
  - Depression [None]
  - Anger [None]
  - Loss of personal independence in daily activities [None]
  - Headache [None]
  - Brain fog [None]

NARRATIVE: CASE EVENT DATE: 20230715
